FAERS Safety Report 9085469 (Version 1)
Quarter: 2013Q1

REPORT INFORMATION
  Report Type: Spontaneous
  Country: EC (occurrence: EC)
  Receive Date: 20130129
  Receipt Date: 20130129
  Transmission Date: 20140127
  Serious: Yes (Death, Hospitalization)
  Sender: FDA-Public Use
  Company Number: PHHY2013EC007957

PATIENT
  Sex: Female

DRUGS (2)
  1. EXFORGE HCT [Suspect]
     Dosage: 1 DF (160 MG VALS/ 10 MG AMLO/ 25 MG HCTZ), UNK
     Dates: start: 2010, end: 201210
  2. LOSARTAN [Concomitant]

REACTIONS (2)
  - Renal failure [Fatal]
  - Coma [Unknown]
